FAERS Safety Report 9162253 (Version 5)
Quarter: 2013Q3

REPORT INFORMATION
  Report Type: Spontaneous
  Country: US (occurrence: None)
  Receive Date: 20130222
  Receipt Date: 20130812
  Transmission Date: 20140515
  Serious: Yes (Other)
  Sender: FDA-Public Use
  Company Number: JPI-P-029913

PATIENT
  Age: 39 Year
  Sex: Female

DRUGS (5)
  1. XYREM [Suspect]
     Indication: NARCOLEPSY
     Dosage: 4.5 GM (2.25 GM, 2 IN 1 D)
     Route: 048
     Dates: start: 20130102, end: 2013
  2. XYREM [Suspect]
     Indication: SOMNOLENCE
     Dosage: 4.5 GM (2.25 GM, 2 IN 1 D)
     Route: 048
     Dates: start: 20130102, end: 2013
  3. LAMOTRIGINE [Concomitant]
  4. DULOXETINE HYDROCHLORIDE [Concomitant]
  5. BUPROPION HYDROCHLORIDE [Concomitant]

REACTIONS (3)
  - Flashback [None]
  - Vulvovaginal mycotic infection [None]
  - Mental disorder [None]
